FAERS Safety Report 7646327-1 (Version None)
Quarter: 2011Q3

REPORT INFORMATION
  Report Type: 
  Country: None (occurrence: None)
  Receive Date: 20110725
  Receipt Date: 20110707
  Transmission Date: 20111222
  Serious: Yes (Hospitalization, Other)
  Sender: FDA-Public Use
  Company Number: DSA_47114_2011

PATIENT
  Age: 91 Year
  Sex: Female

DRUGS (4)
  1. ENALAPRIL MALEATE [Suspect]
     Indication: PRODUCT USED FOR UNKNOWN INDICATION
     Dosage: (5 MG QD ORAL), (5 MG BID ORAL)
     Route: 048
     Dates: start: 20000101
  2. ENALAPRIL MALEATE [Suspect]
     Indication: PRODUCT USED FOR UNKNOWN INDICATION
     Dosage: (5 MG QD ORAL), (5 MG BID ORAL)
     Route: 048
     Dates: start: 20110517, end: 20110517
  3. PROPAFENONE HCL (PROPAFENONE HCL) (150 MG, 150 MG) (NOT SPECIFIED) [Suspect]
     Indication: PRODUCT USED FOR UNKNOWN INDICATION
     Dosage: (300 MG QD ORAL), (300 MG BID ORAL)
     Route: 048
     Dates: start: 20000101
  4. PROPAFENONE HCL (PROPAFENONE HCL) (150 MG, 150 MG) (NOT SPECIFIED) [Suspect]
     Indication: PRODUCT USED FOR UNKNOWN INDICATION
     Dosage: (300 MG QD ORAL), (300 MG BID ORAL)
     Route: 048
     Dates: start: 20110517, end: 20110517

REACTIONS (3)
  - BRADYCARDIA [None]
  - HYPOTENSION [None]
  - INCORRECT DOSE ADMINISTERED [None]
